FAERS Safety Report 7686248-1 (Version None)
Quarter: 2011Q3

REPORT INFORMATION
  Report Type: 
  Country: None (occurrence: None)
  Receive Date: 20110816
  Receipt Date: 20100706
  Transmission Date: 20111222
  Serious: No
  Sender: FDA-Public Use
  Company Number: US-GLAXOSMITHKLINE-A0868562A

PATIENT
  Age: 61 Year
  Sex: Female

DRUGS (2)
  1. ASPIRIN [Concomitant]
  2. TAGAMET HB 200 [Suspect]
     Indication: DYSPEPSIA
     Dates: start: 20100705, end: 20100705

REACTIONS (7)
  - EYE SWELLING [None]
  - EYE PRURITUS [None]
  - RASH GENERALISED [None]
  - URTICARIA [None]
  - COUGH [None]
  - PRURITUS GENERALISED [None]
  - OROPHARYNGEAL DISCOMFORT [None]
